FAERS Safety Report 6717772-3 (Version None)
Quarter: 2010Q2

REPORT INFORMATION
  Report Type: 
  Country: None (occurrence: None)
  Receive Date: 20100510
  Receipt Date: 20100430
  Transmission Date: 20101027
  Serious: Yes (Death)
  Sender: FDA-Public Use
  Company Number: GXKR2010DK04913

PATIENT
  Age: 24 Year
  Sex: Female

DRUGS (1)
  1. METHYLPREDNISOLONE 16MG TAB [Suspect]
     Indication: ENDOCRINE OPHTHALMOPATHY
     Dosage: 1G DILUTED IN 500 ML SALINE, GIVEN OVER 6 HOURS DAILY
     Route: 042
     Dates: start: 20021201

REACTIONS (7)
  - BRAIN OEDEMA [None]
  - CARDIAC ARREST [None]
  - CEREBRAL INFARCTION [None]
  - CEREBRAL THROMBOSIS [None]
  - HALLUCINATION, VISUAL [None]
  - LACRIMAL DISORDER [None]
  - LOSS OF CONSCIOUSNESS [None]
